FAERS Safety Report 9515297 (Version 1)
Quarter: 2013Q1

REPORT INFORMATION
  Report Type: Spontaneous
  Country: US (occurrence: None)
  Receive Date: 20130305
  Receipt Date: 20130305
  Transmission Date: 20140127
  Serious: Yes (Other)
  Sender: FDA-Public Use
  Company Number: 163-21880-12121482

PATIENT
  Age: 55 Year
  Sex: Male
  Weight: 85.73 kg

DRUGS (11)
  1. REVLIMID [Suspect]
     Indication: PLASMA CELL MYELOMA
     Dosage: 5 MG, 1 IN 1 D, PO
     Route: 048
     Dates: start: 20101001
  2. ACYCLOVIR (ACICLOVIR) (UNKNOWN) [Concomitant]
  3. CALCITRIOL (CALCITRIOL) (UNKNOWN) [Concomitant]
  4. COLACE (DOCUSATE SODIUM) (CAPSULES) [Concomitant]
  5. ESSENTIAL MAN (VITAMANS) (UNKNOWN) [Concomitant]
  6. LOVENOX (HEPARIN-FRACTION, SODIUM SALT) (UNKNOWN) [Concomitant]
  7. METHADONE HCL (METHADONE HYDROCHLORIDE) (UNKNOWN) [Concomitant]
  8. MIRALAX (MACROGOL) (POWDER) [Concomitant]
  9. OMEPRAZOLE MAGNESIUM (OMEPRAZOLE MAGNESIUM) (POWDER) [Concomitant]
  10. OXYCODONE HCL (OXYCODONE HYDROCHLORIDE) (POWDER)? [Concomitant]
  11. PAXIL (PAROXETINE HYDROCHLORIDE) (TABLETS) [Concomitant]

REACTIONS (3)
  - Platelet count decreased [None]
  - White blood cell count decreased [None]
  - Nausea [None]
